FAERS Safety Report 24013657 (Version 1)
Quarter: 2024Q2

REPORT INFORMATION
  Report Type: Spontaneous
  Country: US (occurrence: US)
  Receive Date: 20240626
  Receipt Date: 20240626
  Transmission Date: 20240715
  Serious: No
  Sender: FDA-Public Use
  Company Number: US-TEVA-VS-3210891

PATIENT
  Sex: Male

DRUGS (1)
  1. PROPRANOLOL HYDROCHLORIDE [Suspect]
     Active Substance: PROPRANOLOL HYDROCHLORIDE
     Indication: Product used for unknown indication
     Dosage: HE TOOK THE ACTAVIS PRODUCT FOR ^ABOUT 6 MONTHS^
     Route: 065

REACTIONS (2)
  - Exposure to allergen [Unknown]
  - Wrong technique in product usage process [Unknown]
